FAERS Safety Report 7660641-5 (Version None)
Quarter: 2011Q3

REPORT INFORMATION
  Report Type: 
  Country: None (occurrence: None)
  Receive Date: 20110805
  Receipt Date: 20101117
  Transmission Date: 20111222
  Serious: No
  Sender: FDA-Public Use
  Company Number: US-ABBOTT-10P-163-0686738-00

PATIENT
  Sex: Male
  Weight: 63.56 kg

DRUGS (11)
  1. ISOSORBIDE DINITRATE [Concomitant]
     Indication: PROPHYLAXIS
  2. POLY IRON [Concomitant]
     Indication: RED BLOOD CELL COUNT ABNORMAL
  3. NIASPAN [Suspect]
     Indication: BLOOD TRIGLYCERIDES INCREASED
     Dates: start: 20100607
  4. SIMVASTATIN [Concomitant]
     Indication: PRODUCT USED FOR UNKNOWN INDICATION
  5. LISINOPRIL [Concomitant]
     Indication: HYPERTENSION
  6. NITROGLYCERIN [Concomitant]
     Indication: PRODUCT USED FOR UNKNOWN INDICATION
     Route: 060
  7. FLAXSEED OIL [Concomitant]
     Indication: DRY SKIN
  8. PLAVIX [Concomitant]
     Indication: CORONARY ARTERIAL STENT INSERTION
  9. ASPIRIN [Concomitant]
     Indication: CORONARY ARTERIAL STENT INSERTION
  10. METOPROLOL TARTRATE [Concomitant]
     Indication: HYPERTENSION
  11. PANTOPRAZOLE [Concomitant]
     Indication: GASTROOESOPHAGEAL REFLUX DISEASE

REACTIONS (2)
  - MOBILITY DECREASED [None]
  - PAIN IN EXTREMITY [None]
